FAERS Safety Report 12857320 (Version 4)
Quarter: 2017Q1

REPORT INFORMATION
  Report Type: Spontaneous
  Country: US (occurrence: US)
  Receive Date: 20161018
  Receipt Date: 20170119
  Transmission Date: 20170428
  Serious: Yes (Other)
  Sender: FDA-Public Use
  Company Number: US-GLAXOSMITHKLINE-US2016148513

PATIENT
  Sex: Male

DRUGS (6)
  1. AVODART [Suspect]
     Active Substance: DUTASTERIDE
     Indication: PROSTATOMEGALY
     Dosage: 0.5 MG, QD
     Route: 048
     Dates: start: 2012
  2. AVODART [Interacting]
     Active Substance: DUTASTERIDE
     Dosage: 0.5 MG, QOD
     Route: 048
  3. AVODART [Interacting]
     Active Substance: DUTASTERIDE
     Dosage: 0.5 MG, QD
  4. DUTASTERIDE. [Suspect]
     Active Substance: DUTASTERIDE
     Dosage: UNK, QOD
     Dates: start: 2016, end: 2016
  5. KLONOPIN [Concomitant]
     Active Substance: CLONAZEPAM
  6. COLACE [Concomitant]
     Active Substance: DOCUSATE SODIUM

REACTIONS (9)
  - Tendonitis [Recovered/Resolved with Sequelae]
  - Rectal haemorrhage [Not Recovered/Not Resolved]
  - Underdose [Unknown]
  - Drug ineffective [Not Recovered/Not Resolved]
  - Rash [Recovered/Resolved]
  - Food interaction [Not Recovered/Not Resolved]
  - Prostatic haemorrhage [Unknown]
  - Psoriasis [Recovered/Resolved]
  - Drug dose omission [Unknown]
